FAERS Safety Report 7911756-5 (Version None)
Quarter: 2011Q4

REPORT INFORMATION
  Report Type: 
  Country: None (occurrence: None)
  Receive Date: 20111114
  Receipt Date: 20111114
  Transmission Date: 20120403
  Serious: Yes (Hospitalization)
  Sender: FDA-Public Use
  Company Number: None

PATIENT
  Age: 54 Year
  Sex: Female
  Weight: 76 kg

DRUGS (1)
  1. ZELBORAF [Suspect]
     Indication: MALIGNANT MELANOMA
     Dosage: 750 MG
     Route: 048
     Dates: start: 20111101, end: 20111109

REACTIONS (5)
  - ARTHRALGIA [None]
  - DRUG ERUPTION [None]
  - RASH MACULO-PAPULAR [None]
  - ANGIOEDEMA [None]
  - RENAL FAILURE ACUTE [None]
